FAERS Safety Report 25983797 (Version 1)
Quarter: 2025Q4

REPORT INFORMATION
  Report Type: Spontaneous
  Country: RS (occurrence: RS)
  Receive Date: 20251031
  Receipt Date: 20251031
  Transmission Date: 20260118
  Serious: Yes (Hospitalization, Other)
  Sender: AMGEN
  Company Number: RS-AMGEN-SRBSP2025214789

PATIENT
  Age: 61 Year
  Sex: Male

DRUGS (9)
  1. VECTIBIX [Suspect]
     Active Substance: PANITUMUMAB
     Indication: Colorectal cancer metastatic
     Dosage: UNK
     Route: 065
     Dates: start: 20240417
  2. VECTIBIX [Suspect]
     Active Substance: PANITUMUMAB
     Dosage: UNK 5TH/6TH CYCLE -   ADMINISTERED IN ONE DAY UNTIL 03/JUL/2024
     Route: 065
     Dates: start: 2024, end: 20240730
  3. VECTIBIX [Suspect]
     Active Substance: PANITUMUMAB
     Dosage: UNK
     Route: 065
     Dates: start: 20240830, end: 20241108
  4. VECTIBIX [Suspect]
     Active Substance: PANITUMUMAB
     Dosage: UNK
     Route: 065
     Dates: start: 20250214, end: 20250523
  5. VECTIBIX [Suspect]
     Active Substance: PANITUMUMAB
     Dosage: UNK
     Route: 065
     Dates: start: 20250825, end: 20251010
  6. LEUCOVORIN CALCIUM [Suspect]
     Active Substance: LEUCOVORIN CALCIUM
     Indication: Colorectal cancer metastatic
     Dosage: UNK
     Route: 065
     Dates: start: 20240417
  7. FLUOROURACIL [Suspect]
     Active Substance: FLUOROURACIL
     Indication: Colorectal cancer metastatic
     Dosage: UNK
     Route: 065
     Dates: start: 20240417
  8. IRINOTECAN HYDROCHLORIDE [Suspect]
     Active Substance: IRINOTECAN HYDROCHLORIDE
     Indication: Colorectal cancer metastatic
     Dosage: UNK
     Route: 065
     Dates: start: 20240417
  9. IRINOTECAN HYDROCHLORIDE [Suspect]
     Active Substance: IRINOTECAN HYDROCHLORIDE
     Dosage: UNK, UNK 5TH/6TH CYCLE -   ADMINISTERED IN ONE DAY UNTIL 03/JUL/2024
     Route: 065
     Dates: start: 2024

REACTIONS (9)
  - Brain injury [Recovering/Resolving]
  - Colorectal cancer metastatic [Unknown]
  - Haematemesis [Unknown]
  - Melaena [Unknown]
  - Mental disorder [Recovering/Resolving]
  - Somatic symptom disorder [Recovering/Resolving]
  - Mental impairment [Recovering/Resolving]
  - Rash [Unknown]
  - Therapy interrupted [Unknown]

NARRATIVE: CASE EVENT DATE: 20240101
